FAERS Safety Report 18349085 (Version 5)
Quarter: 2022Q4

REPORT INFORMATION
  Report Type: Report from Study
  Country: US (occurrence: US)
  Receive Date: 20201006
  Receipt Date: 20221016
  Transmission Date: 20230113
  Serious: Yes (Other)
  Sender: FDA-Public Use
  Company Number: US-SHIRE-US202032434

PATIENT
  Age: 30 Year
  Sex: Female

DRUGS (5)
  1. VON WILLEBRAND FACTOR HUMAN [Suspect]
     Active Substance: VON WILLEBRAND FACTOR HUMAN
     Indication: Haemorrhage
     Dosage: 8880 INTERNATIONAL UNIT
     Route: 042
  2. VON WILLEBRAND FACTOR HUMAN [Suspect]
     Active Substance: VON WILLEBRAND FACTOR HUMAN
     Dosage: 9040 INTERNATIONAL UNIT
     Route: 042
  3. VON WILLEBRAND FACTOR HUMAN [Suspect]
     Active Substance: VON WILLEBRAND FACTOR HUMAN
     Dosage: 9680 INTERNATIONAL UNIT
     Route: 042
  4. VON WILLEBRAND FACTOR HUMAN [Suspect]
     Active Substance: VON WILLEBRAND FACTOR HUMAN
     Dosage: 9600 INTERNATIONAL UNIT
     Route: 042
  5. VON WILLEBRAND FACTOR HUMAN [Suspect]
     Active Substance: VON WILLEBRAND FACTOR HUMAN
     Dosage: 9600 INTERNATIONAL UNIT, 2/WEEK
     Route: 042

REACTIONS (14)
  - Haemarthrosis [Unknown]
  - Oropharyngeal pain [Unknown]
  - Musculoskeletal stiffness [Unknown]
  - Back pain [Not Recovered/Not Resolved]
  - Nerve block [Unknown]
  - Tenderness [Unknown]
  - Skin discolouration [Unknown]
  - Pain [Unknown]
  - Herpes zoster [Unknown]
  - COVID-19 [Unknown]
  - Sciatica [Unknown]
  - Arthralgia [Unknown]
  - Headache [Not Recovered/Not Resolved]
  - Pruritus [Unknown]

NARRATIVE: CASE EVENT DATE: 20200930
